FAERS Safety Report 12728104 (Version 2)
Quarter: 2016Q4

REPORT INFORMATION
  Report Type: Spontaneous
  Country: US (occurrence: US)
  Receive Date: 20160909
  Receipt Date: 20161110
  Transmission Date: 20170207
  Serious: Yes (Other)
  Sender: FDA-Public Use
  Company Number: US-PFIZER INC-2015421941

PATIENT
  Age: 60 Year
  Sex: Female
  Weight: 79.37 kg

DRUGS (25)
  1. LYRICA [Suspect]
     Active Substance: PREGABALIN
     Indication: NEUROPATHY PERIPHERAL
     Dosage: TWO 50MG TABLET A DAY
     Route: 048
     Dates: start: 20151110
  2. NORCO [Concomitant]
     Active Substance: ACETAMINOPHEN\HYDROCODONE BITARTRATE
     Indication: PAIN
     Dosage: AS NEEDED [HYDROCODONE BITARTRATE 10]/[PARACETAMOL 325]
     Route: 048
     Dates: start: 2013
  3. NORVASC [Concomitant]
     Active Substance: AMLODIPINE BESYLATE
     Indication: CARDIAC DISORDER
     Dosage: 5 MG, 1X/DAY
     Route: 048
     Dates: start: 2014
  4. CELEBREX [Concomitant]
     Active Substance: CELECOXIB
     Indication: ARTHRITIS
     Dosage: 200 MG, UNK
     Dates: start: 2014
  5. CYCLOBENZAPRINE HCL [Concomitant]
     Active Substance: CYCLOBENZAPRINE HYDROCHLORIDE
     Indication: RHEUMATOID ARTHRITIS
  6. VITAMIN B6 [Concomitant]
     Active Substance: PYRIDOXINE HYDROCHLORIDE
     Indication: NEUROPATHY PERIPHERAL
     Dosage: 50MG TWICE A DAY
     Dates: start: 2014
  7. AMLODIPINE [Concomitant]
     Active Substance: AMLODIPINE BESYLATE
     Indication: HYPERTENSION
     Dosage: ONE 5MG TABLET A DAY
     Route: 048
     Dates: start: 2014
  8. BUTALBAPAPCAF [Concomitant]
     Indication: MIGRAINE
     Dosage: ONE OR TWO [BUTALBITAL 53MG]/ [CAFFEINE 40MG]/[PARACETAMOL 25MG] TABLETS, AS NEEDED
     Dates: start: 2010
  9. TRAMADOL HCL [Concomitant]
     Active Substance: TRAMADOL HYDROCHLORIDE
     Indication: ARTHRITIS
     Dosage: 50MG PILL TWICE A DAY
     Route: 048
     Dates: start: 2006
  10. VESICARE [Concomitant]
     Active Substance: SOLIFENACIN SUCCINATE
     Indication: BLADDER DISORDER
     Dosage: 10 MG, 1X/DAY
     Route: 048
     Dates: start: 2005
  11. FLEXERIL [Concomitant]
     Active Substance: CYCLOBENZAPRINE HYDROCHLORIDE
     Indication: ARTHRITIS
     Dosage: 10 MG, 1X/DAY
     Route: 048
     Dates: start: 2000
  12. BUTALBITAL APAP CAFFEINE [Concomitant]
     Indication: MIGRAINE
     Dosage: UNK, AS NEEDED [BUTALBITAL 50]/[CAFFEINE 40]/[PARACETAMOL 325]
     Route: 048
     Dates: start: 2008
  13. BUTALBAPAPCAF [Concomitant]
     Dosage: UNK
     Dates: start: 2008
  14. CYCLOBENZAPRINE HCL [Concomitant]
     Active Substance: CYCLOBENZAPRINE HYDROCHLORIDE
     Indication: OSTEOARTHRITIS
     Dosage: ONE 10MG TABLET ONCE A DAY
     Route: 048
     Dates: start: 2006
  15. HYRDOCODONE APAP [Concomitant]
     Indication: PAIN
     Dosage: USUALLY ONE [HYDROCODONE BITARTRATE 10MG]/[PARACETAMOL 325MG] PILL, AS NEEDED
     Route: 048
     Dates: start: 2006
  16. CALCIUM WITH VITAMIN D [Concomitant]
     Active Substance: CALCIUM\VITAMIN D
     Indication: ARTHRITIS
     Dosage: 600MG ONCE A DAY
     Route: 048
     Dates: start: 2008
  17. ZINC [Concomitant]
     Active Substance: ZINC\ZINC CHLORIDE
     Indication: NASOPHARYNGITIS
     Dosage: 50MG ONCE A DAY
     Dates: start: 2010
  18. ULTRAM [Concomitant]
     Active Substance: TRAMADOL HYDROCHLORIDE
     Indication: ARTHRITIS
     Dosage: 50 MG, 2X/DAY
     Route: 048
     Dates: start: 2006
  19. AMBIEN [Concomitant]
     Active Substance: ZOLPIDEM TARTRATE
     Indication: SLEEP DISORDER
     Dosage: 10 MG, AS NEEDED
     Route: 048
     Dates: start: 2012
  20. LYRICA [Suspect]
     Active Substance: PREGABALIN
     Indication: FOOT DEFORMITY
     Dosage: 200 MG, DAILY (50MG, 4 TABLETS DAILY)
     Route: 048
     Dates: start: 201601, end: 20160801
  21. DITROPAN XL [Concomitant]
     Active Substance: OXYBUTYNIN CHLORIDE
     Indication: BLADDER DISORDER
     Dosage: ONE 10MG TABLET ONCE A DAY
     Route: 048
     Dates: start: 2010
  22. MOBIC [Concomitant]
     Active Substance: MELOXICAM
     Indication: ARTHRITIS
     Dosage: 15 MG, 1X/DAY
     Route: 048
     Dates: start: 2012
  23. CYCLOBENZAPRINE HCL [Concomitant]
     Active Substance: CYCLOBENZAPRINE HYDROCHLORIDE
     Indication: FIBROMYALGIA
  24. SERTRALINE [Concomitant]
     Active Substance: SERTRALINE HYDROCHLORIDE
     Dosage: ONE 100MG TABLET ONCE A DAY
     Route: 048
     Dates: start: 2006
  25. ZOLOFT [Concomitant]
     Active Substance: SERTRALINE HYDROCHLORIDE
     Indication: ANXIETY
     Dosage: 100 MG, 1X/DAY
     Route: 048
     Dates: start: 2006

REACTIONS (11)
  - Insomnia [Not Recovered/Not Resolved]
  - Upper limb fracture [Not Recovered/Not Resolved]
  - Hyperhidrosis [Not Recovered/Not Resolved]
  - Dysgeusia [Recovered/Resolved]
  - Vomiting [Recovered/Resolved]
  - Abdominal pain upper [Not Recovered/Not Resolved]
  - Intentional product use issue [Not Recovered/Not Resolved]
  - Anxiety [Not Recovered/Not Resolved]
  - Diarrhoea [Not Recovered/Not Resolved]
  - Parosmia [Recovering/Resolving]
  - Malaise [Not Recovered/Not Resolved]

NARRATIVE: CASE EVENT DATE: 201606
